FAERS Safety Report 6249610-X (Version None)
Quarter: 2009Q2

REPORT INFORMATION
  Report Type: 
  Country: None (occurrence: None)
  Receive Date: 20090625
  Receipt Date: 20090618
  Transmission Date: 20091009
  Serious: Yes (Death)
  Sender: FDA-Public Use
  Company Number: 2009US002472

PATIENT
  Age: 54 Year
  Sex: Male

DRUGS (4)
  1. AMBISOME [Suspect]
     Indication: DRUG USE FOR UNKNOWN INDICATION
     Dosage: 150 MG UID/QD, IV NOS
     Route: 042
     Dates: start: 20090330, end: 20090401
  2. SPRYCEL [Suspect]
     Indication: CHRONIC MYELOID LEUKAEMIA
     Dosage: 140 MG, UID/QD, ORAL
     Route: 048
     Dates: start: 20090330, end: 20090401
  3. PREDNISOLONE [Concomitant]
  4. OMEPRAL [Concomitant]

REACTIONS (15)
  - ACTIVATED PARTIAL THROMBOPLASTIN TIME PROLONGED [None]
  - ACUTE PULMONARY OEDEMA [None]
  - ANOREXIA [None]
  - COAGULOPATHY [None]
  - GAIT DISTURBANCE [None]
  - GASTROINTESTINAL HAEMORRHAGE [None]
  - GENERALISED OEDEMA [None]
  - HAEMOGLOBIN DECREASED [None]
  - MULTI-ORGAN FAILURE [None]
  - MUSCULAR WEAKNESS [None]
  - MUSCULOSKELETAL DISORDER [None]
  - PULMONARY HAEMORRHAGE [None]
  - RENAL FAILURE [None]
  - SHOCK [None]
  - SHOCK HAEMORRHAGIC [None]
